FAERS Safety Report 10631181 (Version 1)
Quarter: 2014Q4

REPORT INFORMATION
  Report Type: Spontaneous
  Country: US (occurrence: US)
  Receive Date: 20141205
  Receipt Date: 20141205
  Transmission Date: 20150529
  Serious: No
  Sender: FDA-Public Use
  Company Number: US-BRISTOL-MYERS SQUIBB COMPANY-21515275

PATIENT
  Sex: Female

DRUGS (5)
  1. GLIPIZIDE. [Suspect]
     Active Substance: GLIPIZIDE
  2. LEVEMIR [Suspect]
     Active Substance: INSULIN DETEMIR
  3. METFORMIN HCL [Suspect]
     Active Substance: METFORMIN HYDROCHLORIDE
  4. INSULIN ASPART [Suspect]
     Active Substance: INSULIN ASPART
  5. VICTOZA [Suspect]
     Active Substance: LIRAGLUTIDE

REACTIONS (5)
  - Diarrhoea [Unknown]
  - Depression [Unknown]
  - Abdominal discomfort [Unknown]
  - Flatulence [Unknown]
  - Urticaria [Unknown]
